FAERS Safety Report 7145537-X (Version None)
Quarter: 2010Q4

REPORT INFORMATION
  Report Type: 
  Country: None (occurrence: None)
  Receive Date: 20101208
  Receipt Date: 20101117
  Transmission Date: 20110411
  Serious: No
  Sender: FDA-Public Use
  Company Number: US-PFIZER INC-2010152300

PATIENT

DRUGS (10)
  1. LIPITOR [Suspect]
     Dosage: 40 MG, UNK
  2. LIPITOR [Suspect]
     Dosage: 80 MG, UNK
  3. NORVASC [Concomitant]
     Dosage: UNK
  4. ATENOLOL [Concomitant]
     Dosage: UNK
  5. HYDROCHLOROTHIAZIDE [Concomitant]
     Dosage: UNK
  6. NIASPAN [Concomitant]
     Dosage: UNK
  7. PLAVIX [Concomitant]
     Dosage: UNK
  8. ZYPREXA [Concomitant]
     Dosage: UNK
  9. WELCHOL [Concomitant]
     Dosage: UNK
  10. DEPAKOTE [Concomitant]
     Dosage: UNK

REACTIONS (1)
  - MYALGIA [None]
